FAERS Safety Report 9009748 (Version 1)
Quarter: 2013Q1

REPORT INFORMATION
  Report Type: Spontaneous
  Country: US (occurrence: US)
  Receive Date: 20130110
  Receipt Date: 20130110
  Transmission Date: 20140127
  Serious: Yes (Other)
  Sender: FDA-Public Use
  Company Number: US-PFIZER INC-2013007657

PATIENT
  Sex: Male

DRUGS (1)
  1. TOVIAZ [Suspect]
     Dosage: 8 MG, UNK

REACTIONS (6)
  - Urinary tract infection [Unknown]
  - Dyspnoea [Unknown]
  - Dyspepsia [Unknown]
  - Constipation [Unknown]
  - Cough [Unknown]
  - Dry throat [Unknown]
